FAERS Safety Report 4848109-2 (Version None)
Quarter: 2005Q4

REPORT INFORMATION
  Report Type: 
  Country: None (occurrence: None)
  Receive Date: 20051206
  Receipt Date: 20051123
  Transmission Date: 20060501
  Serious: Yes (Hospitalization, Other)
  Sender: FDA-Public Use
  Company Number: NLWYE976714SEP05

PATIENT
  Age: 32 Year
  Sex: Male

DRUGS (4)
  1. EFFEXOR XR [Suspect]
     Indication: DEPRESSION
     Dosage: 85 MG 1X PER 1 DAY; 150 MG 1X PER 1 DAY
     Route: 048
     Dates: start: 20050121, end: 20050205
  2. EFFEXOR XR [Suspect]
     Indication: DEPRESSION
     Dosage: 85 MG 1X PER 1 DAY; 150 MG 1X PER 1 DAY
     Route: 048
     Dates: start: 20050206, end: 20050601
  3. ALCOHOL (ETHANOL) [Concomitant]
  4. OXAZEPAM [Concomitant]

REACTIONS (3)
  - ALCOHOL USE [None]
  - BIPOLAR I DISORDER [None]
  - DRUG WITHDRAWAL SYNDROME [None]
